FAERS Safety Report 21739368 (Version 1)
Quarter: 2022Q4

REPORT INFORMATION
  Report Type: Spontaneous
  Country: US (occurrence: None)
  Receive Date: 20221215
  Receipt Date: 20221215
  Transmission Date: 20230112
  Serious: No
  Sender: FDA-Public Use
  Company Number: None

PATIENT
  Sex: Female

DRUGS (2)
  1. REMODULIN [Suspect]
     Active Substance: TREPROSTINIL
     Dosage: OTHER QUANTITY : 236NG/KG/MIN;?OTHER FREQUENCY : CONTINUOUS;?
     Route: 042
  2. DEVICE [Suspect]
     Active Substance: DEVICE
     Indication: Pulmonary arterial hypertension
     Dates: start: 202103

REACTIONS (7)
  - Device leakage [None]
  - Device leakage [None]
  - Complication of drug delivery system removal [None]
  - Application site pain [None]
  - Haemorrhage [None]
  - Blood pressure abnormal [None]
  - Platelet disorder [None]
